FAERS Safety Report 7804605-7 (Version None)
Quarter: 2011Q4

REPORT INFORMATION
  Report Type: 
  Country: None (occurrence: None)
  Receive Date: 20111010
  Receipt Date: 20110928
  Transmission Date: 20120403
  Serious: Yes (Hospitalization)
  Sender: FDA-Public Use
  Company Number: US-BAYER-2011-007014

PATIENT
  Sex: Female
  Weight: 75 kg

DRUGS (3)
  1. IBUPROFEN (ADVIL) [Concomitant]
  2. YASMIN [Suspect]
     Indication: CONTRACEPTION
     Dosage: UNK
     Dates: start: 20011101, end: 20020201
  3. YASMIN [Suspect]
     Indication: DYSMENORRHOEA

REACTIONS (8)
  - FEELING ABNORMAL [None]
  - ANXIETY [None]
  - PALPITATIONS [None]
  - APHAGIA [None]
  - BACK PAIN [None]
  - DECREASED APPETITE [None]
  - PULMONARY EMBOLISM [None]
  - DYSPNOEA [None]
